FAERS Safety Report 21394301 (Version 1)
Quarter: 2022Q3

REPORT INFORMATION
  Report Type: Spontaneous
  Country: CA (occurrence: CA)
  Receive Date: 20220930
  Receipt Date: 20220930
  Transmission Date: 20221027
  Serious: Yes (Death)
  Sender: FDA-Public Use
  Company Number: CA-TEVA-2022-CA-2077375

PATIENT
  Age: 69 Year
  Sex: Female

DRUGS (2)
  1. ASPIRIN [Interacting]
     Active Substance: ASPIRIN
     Indication: Product used for unknown indication
     Route: 065
  2. CLOPIDOGREL [Suspect]
     Active Substance: CLOPIDOGREL BISULFATE
     Indication: Product used for unknown indication

REACTIONS (2)
  - Cerebral haemorrhage [Fatal]
  - Labelled drug-drug interaction medication error [Fatal]
